FAERS Safety Report 19896187 (Version 1)
Quarter: 2021Q3

REPORT INFORMATION
  Report Type: Spontaneous
  Country: US (occurrence: US)
  Receive Date: 20210929
  Receipt Date: 20210929
  Transmission Date: 20211014
  Serious: Yes (Other)
  Sender: FDA-Public Use
  Company Number: US-PFIZER INC-202101227894

PATIENT

DRUGS (1)
  1. DOBUTAMINE HCL [Suspect]
     Active Substance: DOBUTAMINE HYDROCHLORIDE
     Indication: END STAGE RENAL DISEASE
     Dosage: 3 MUG/KG/MIN

REACTIONS (1)
  - Myoclonus [Recovered/Resolved]
